FAERS Safety Report 5910036-7 (Version None)
Quarter: 2008Q4

REPORT INFORMATION
  Report Type: 
  Country: None (occurrence: None)
  Receive Date: 20081007
  Receipt Date: 20071005
  Transmission Date: 20090506
  Serious: No
  Sender: FDA-Public Use
  Company Number: US-ASTRAZENECA-2007UW18468

PATIENT
  Age: 57 Year
  Sex: Female
  Weight: 91.4 kg

DRUGS (6)
  1. ARIMIDEX [Suspect]
     Indication: BREAST CANCER STAGE III
     Route: 048
     Dates: start: 20020101
  2. METFORMIN HCL [Concomitant]
     Route: 048
  3. DIOVAN HCT [Concomitant]
     Dosage: 160/12.5
     Route: 048
  4. LIPITOR [Concomitant]
     Route: 048
  5. BAYER ASA [Concomitant]
  6. ACIPHEX [Concomitant]

REACTIONS (1)
  - RENAL CYST [None]
